FAERS Safety Report 9610597 (Version 1)
Quarter: 2013Q4

REPORT INFORMATION
  Report Type: Spontaneous
  Country: US (occurrence: US)
  Receive Date: 20131009
  Receipt Date: 20131009
  Transmission Date: 20140711
  Serious: Yes (Other)
  Sender: FDA-Public Use
  Company Number: CHPA2013US015324

PATIENT
  Age: 42 Year
  Sex: Female

DRUGS (8)
  1. PRIVATE LABEL [Suspect]
     Indication: SMOKING CESSATION THERAPY
     Dosage: 21 MG, QD
     Route: 062
     Dates: start: 201309, end: 20130925
  2. ALBUTEROL [Concomitant]
     Indication: PNEUMONIA
     Dosage: UNK, 2 TO 3 TIMES DAILY
     Dates: start: 20130921, end: 201309
  3. SPIRIVA [Concomitant]
     Indication: PNEUMONIA
     Dosage: UNK, BID
     Dates: start: 20130921, end: 201309
  4. ANTIEMETICS [Concomitant]
     Indication: NAUSEA
     Dosage: UNK, UNK
     Route: 042
     Dates: start: 20130921, end: 201309
  5. AZITHROMYCIN [Concomitant]
     Indication: PNEUMONIA
     Dosage: UNK, UNK
     Route: 042
     Dates: start: 20130921, end: 201309
  6. ANTIBIOTICS [Concomitant]
     Indication: PNEUMONIA
     Dosage: UNK, UNK
     Route: 042
     Dates: start: 20130921, end: 201309
  7. MORPHINE [Concomitant]
     Indication: PNEUMONIA
     Dosage: UNK, UNK
     Route: 042
     Dates: start: 20130921, end: 201309
  8. PHENERGAN                          /01851401/ [Concomitant]
     Indication: NAUSEA
     Dosage: UNK, Q6H
     Dates: start: 20130921, end: 201309

REACTIONS (1)
  - Anxiety [Recovered/Resolved]
